FAERS Safety Report 8750683 (Version 2)
Quarter: 2013Q4

REPORT INFORMATION
  Report Type: Spontaneous
  Country: GB (occurrence: None)
  Receive Date: 20120810
  Receipt Date: 20131001
  Transmission Date: 20140711
  Serious: Yes (Other)
  Sender: FDA-Public Use
  Company Number: 1365024

PATIENT
  Age: 63 Year
  Sex: Female
  Weight: 66 kg

DRUGS (6)
  1. GENTAMICIN SULFATE [Suspect]
     Indication: PROPHYLAXIS
     Dosage: 280 MG MILLIGRAM(S), INTRAVENOUS
     Route: 042
     Dates: start: 20120207, end: 20120207
  2. SIMVASTATIN [Concomitant]
  3. ONDANSETRON [Concomitant]
  4. CYCLIZINE [Concomitant]
  5. PARACETAMOL [Concomitant]
  6. TRAMADOL HYDROCHLORIDE [Concomitant]

REACTIONS (2)
  - Renal failure acute [None]
  - Nephropathy toxic [None]
